FAERS Safety Report 4301962-3 (Version None)
Quarter: 2004Q1

REPORT INFORMATION
  Report Type: 
  Country: None (occurrence: None)
  Receive Date: 20040220
  Receipt Date: 20040120
  Transmission Date: 20041129
  Serious: No
  Sender: FDA-Public Use
  Company Number: 200410136BCC

PATIENT
  Age: 63 Year
  Sex: Female
  Weight: 77.1115 kg

DRUGS (2)
  1. ALEVE COLD AND SINUS [Suspect]
     Indication: NASOPHARYNGITIS
     Dosage: 220/120 MG, ONCE, ORAL
     Route: 048
     Dates: start: 20040107
  2. INHALERS [Concomitant]

REACTIONS (3)
  - CHEST PAIN [None]
  - HEART RATE INCREASED [None]
  - INSOMNIA [None]
